FAERS Safety Report 6302901-6 (Version None)
Quarter: 2009Q3

REPORT INFORMATION
  Report Type: 
  Country: None (occurrence: None)
  Receive Date: 20090810
  Receipt Date: 20090731
  Transmission Date: 20100115
  Serious: Yes (Hospitalization)
  Sender: FDA-Public Use
  Company Number: US-ELI_LILLY_AND_COMPANY-US200907007285

PATIENT
  Sex: Male
  Weight: 83.9 kg

DRUGS (8)
  1. BYETTA [Suspect]
     Dosage: 5 UG, 2/D
     Route: 058
     Dates: start: 20070101, end: 20070101
  2. BYETTA [Suspect]
     Dosage: 10 UG, 2/D
     Route: 058
     Dates: start: 20070101, end: 20090601
  3. BYETTA [Suspect]
     Dosage: 10 UG, 2/D
     Route: 058
     Dates: start: 20090601
  4. METFORMIN HCL [Concomitant]
     Indication: TYPE 2 DIABETES MELLITUS
     Dosage: UNK, UNKNOWN
  5. GLIPIZIDE [Concomitant]
     Indication: TYPE 2 DIABETES MELLITUS
     Dosage: UNK, UNKNOWN
  6. LISINOPRIL [Concomitant]
     Indication: PROPHYLAXIS
     Dosage: UNK, UNKNOWN
  7. TRICOR [Concomitant]
     Indication: BLOOD TRIGLYCERIDES INCREASED
     Dosage: UNK, UNKNOWN
  8. OTHER DRUGS FOR PEPTIC ULCER AND GORD [Concomitant]
     Indication: REFLUX OESOPHAGITIS
     Dosage: UNK, UNKNOWN

REACTIONS (5)
  - BACK PAIN [None]
  - BLOOD GLUCOSE ABNORMAL [None]
  - FEELING JITTERY [None]
  - HYPOGLYCAEMIA [None]
  - SPINA BIFIDA [None]
